FAERS Safety Report 22219905 (Version 1)
Quarter: 2023Q2

REPORT INFORMATION
  Report Type: Spontaneous
  Country: CN (occurrence: CN)
  Receive Date: 20230417
  Receipt Date: 20230417
  Transmission Date: 20230721
  Serious: Yes (Other)
  Sender: FDA-Public Use
  Company Number: CN-BAYER-2023A046342

PATIENT
  Age: 66 Year
  Sex: Male

DRUGS (13)
  1. NEXAVAR [Suspect]
     Active Substance: SORAFENIB
     Indication: Hepatocellular carcinoma
     Dosage: 200 MG, BID, 4 CYCLES
     Dates: start: 202011, end: 202103
  2. STIVARGA [Suspect]
     Active Substance: REGORAFENIB
     Indication: Hepatocellular carcinoma
     Dosage: UNK
     Dates: start: 202106
  3. SINTILIMAB [Concomitant]
     Active Substance: SINTILIMAB
     Indication: Hepatocellular carcinoma
     Dosage: 200 MG, Q21D, 4 CYCLES
     Dates: start: 202011, end: 202103
  4. CAMRELIZUMAB [Concomitant]
     Active Substance: CAMRELIZUMAB
     Indication: Hepatocellular carcinoma
     Dosage: UNK
     Dates: start: 202106
  5. IODINE [Concomitant]
     Active Substance: IODINE
     Indication: Transcatheter arterial chemoembolisation
     Dosage: 3 ML, ONCE
     Dates: start: 20201120, end: 20201120
  6. IODINE [Concomitant]
     Active Substance: IODINE
     Indication: Transcatheter arterial chemoembolisation
     Dosage: 4 ML, ONCE
     Dates: start: 20201217, end: 20201217
  7. IODINE [Concomitant]
     Active Substance: IODINE
     Indication: Transcatheter arterial chemoembolisation
     Dosage: 5 ML, ONCE
     Dates: start: 20210323, end: 20210323
  8. PIRARUBICIN [Concomitant]
     Active Substance: PIRARUBICIN
     Indication: Transcatheter arterial chemoembolisation
     Dosage: 50 MG, ONCE
     Dates: start: 20201120, end: 20201120
  9. PIRARUBICIN [Concomitant]
     Active Substance: PIRARUBICIN
     Indication: Transcatheter arterial chemoembolisation
     Dosage: 50 MG, ONCE
     Dates: start: 20201217, end: 20201217
  10. PIRARUBICIN [Concomitant]
     Active Substance: PIRARUBICIN
     Indication: Transcatheter arterial chemoembolisation
     Dosage: 50 MG, ONCE
     Dates: start: 20210323, end: 20210323
  11. LOBAPLATIN [Concomitant]
     Active Substance: LOBAPLATIN
     Indication: Transcatheter arterial chemoembolisation
     Dosage: 50 MG, ONCE
     Dates: start: 20201120, end: 20201120
  12. LOBAPLATIN [Concomitant]
     Active Substance: LOBAPLATIN
     Indication: Transcatheter arterial chemoembolisation
     Dosage: 50 MG, ONCE
     Dates: start: 20201217, end: 20201217
  13. LOBAPLATIN [Concomitant]
     Active Substance: LOBAPLATIN
     Indication: Transcatheter arterial chemoembolisation
     Dosage: 50 MG, ONCE
     Dates: start: 20210323, end: 20210323

REACTIONS (3)
  - Hepatocellular carcinoma [None]
  - Hepatocellular carcinoma [Recovered/Resolved]
  - Off label use [None]

NARRATIVE: CASE EVENT DATE: 20201101
